FAERS Safety Report 25254539 (Version 1)
Quarter: 2025Q2

REPORT INFORMATION
  Report Type: Spontaneous
  Country: US (occurrence: None)
  Receive Date: 20250430
  Receipt Date: 20250430
  Transmission Date: 20250717
  Serious: Yes (Hospitalization)
  Sender: FDA-CTU
  Company Number: None

PATIENT
  Sex: Male

DRUGS (2)
  1. TACROLIMUS [Suspect]
     Active Substance: TACROLIMUS
     Indication: Liver transplant
     Dosage: FREQUENCY : TWICE A DAY;?
     Route: 048
     Dates: start: 20201117
  2. EVEROLIMUS [Suspect]
     Active Substance: EVEROLIMUS

REACTIONS (5)
  - Vomiting [None]
  - Nausea [None]
  - Food poisoning [None]
  - Intestinal resection [None]
  - Therapy interrupted [None]
